FAERS Safety Report 6389645-X (Version None)
Quarter: 2009Q4

REPORT INFORMATION
  Report Type: 
  Country: None (occurrence: None)
  Receive Date: 20091006
  Receipt Date: 20090930
  Transmission Date: 20100525
  Serious: Yes (Death, Other)
  Sender: FDA-Public Use
  Company Number: PHHY2009MX42501

PATIENT
  Sex: Male

DRUGS (1)
  1. DIOVAN [Suspect]
     Indication: HYPERTENSION
     Dosage: 1 TABLET (160 MG)/DAY
     Route: 048
     Dates: start: 20060901, end: 20090620

REACTIONS (3)
  - ACCIDENT [None]
  - LIVER DISORDER [None]
  - LUNG DISORDER [None]
